FAERS Safety Report 8202756-9 (Version None)
Quarter: 2012Q1

REPORT INFORMATION
  Report Type: 
  Country: None (occurrence: None)
  Receive Date: 20120312
  Receipt Date: 20120312
  Transmission Date: 20120608
  Serious: Yes (Other)
  Sender: FDA-Public Use
  Company Number: None

PATIENT
  Age: 54 Year
  Sex: Female
  Weight: 49.895 kg

DRUGS (2)
  1. LIALDA [Suspect]
     Indication: COLITIS ULCERATIVE
     Dosage: 3 TABLETS
     Route: 048
     Dates: start: 20120224, end: 20120302
  2. LIALDA [Concomitant]
     Dosage: 3 TABLETS
     Route: 048
     Dates: start: 20120224, end: 20120302

REACTIONS (11)
  - INFLUENZA LIKE ILLNESS [None]
  - ABDOMINAL PAIN UPPER [None]
  - APPETITE DISORDER [None]
  - CONDITION AGGRAVATED [None]
  - ASTHENIA [None]
  - CHILLS [None]
  - COLITIS ULCERATIVE [None]
  - PYREXIA [None]
  - CHEST DISCOMFORT [None]
  - HEADACHE [None]
  - DYSPNOEA [None]
